FAERS Safety Report 18499561 (Version 1)
Quarter: 2020Q4

REPORT INFORMATION
  Report Type: Spontaneous
  Country: ES (occurrence: ES)
  Receive Date: 20201113
  Receipt Date: 20201113
  Transmission Date: 20210114
  Serious: Yes (Death)
  Sender: FDA-Public Use
  Company Number: ES-B.I. PHARMACEUTICALS,INC./RIDGEFIELD-2020-BI-060663

PATIENT
  Age: 66 Year
  Sex: Female
  Weight: 61 kg

DRUGS (1)
  1. OFEV [Suspect]
     Active Substance: NINTEDANIB
     Indication: IDIOPATHIC PULMONARY FIBROSIS
     Dosage: 150 MG EVERY 12 HOURS
     Route: 048
     Dates: start: 202007, end: 20201024

REACTIONS (3)
  - Tachyarrhythmia [Fatal]
  - Diarrhoea [Fatal]
  - Hypokalaemia [Fatal]

NARRATIVE: CASE EVENT DATE: 202009
